FAERS Safety Report 9129762 (Version 1)
Quarter: 2013Q1

REPORT INFORMATION
  Report Type: Spontaneous
  Country: JP (occurrence: JP)
  Receive Date: 20130125
  Receipt Date: 20130125
  Transmission Date: 20140127
  Serious: Yes (Other)
  Sender: FDA-Public Use
  Company Number: JP-PFIZER INC-2013016382

PATIENT
  Age: 52 Year
  Sex: Male

DRUGS (9)
  1. OXALIPLATIN [Suspect]
     Indication: COLON CANCER
     Dosage: UNK
  2. OXALIPLATIN [Suspect]
     Indication: METASTASES TO ADRENALS
  3. OXALIPLATIN [Suspect]
     Indication: METASTASES TO LYMPH NODES
  4. CAPECITABINE [Suspect]
     Indication: COLON CANCER
     Dosage: UNK
  5. CAPECITABINE [Suspect]
     Indication: METASTASES TO LYMPH NODES
  6. CAPECITABINE [Suspect]
     Indication: METASTASES TO ADRENALS
  7. BEVACIZUMAB [Suspect]
     Indication: COLON CANCER
     Dosage: UNK
  8. BEVACIZUMAB [Suspect]
     Indication: METASTASES TO LYMPH NODES
  9. BEVACIZUMAB [Suspect]
     Indication: METASTASES TO ADRENALS

REACTIONS (4)
  - Gastric ulcer haemorrhage [Recovered/Resolved]
  - Neutropenia [Unknown]
  - Thrombocytopenia [Unknown]
  - Neuropathy peripheral [Not Recovered/Not Resolved]
